FAERS Safety Report 9296541 (Version 2)
Quarter: 2013Q2

REPORT INFORMATION
  Report Type: Report from Study
  Country: US (occurrence: US)
  Receive Date: 20130517
  Receipt Date: 20130531
  Transmission Date: 20140414
  Serious: Yes (Other)
  Sender: FDA-Public Use
  Company Number: US-MYLANLABS-2013S1010264

PATIENT
  Age: 25 Year
  Sex: Female

DRUGS (7)
  1. AMNESTEEM CAPSULES [Suspect]
     Dates: start: 20130118, end: 20130502
  2. AMNESTEEM CAPSULES [Suspect]
     Dates: start: 20130513, end: 20130522
  3. LAMICTAL [Concomitant]
     Indication: BIPOLAR DISORDER
  4. METRONIDAZOLE [Concomitant]
  5. VITAMIN D [Concomitant]
  6. MULTIVITAMIN [Concomitant]
  7. DEPO PROVERA [Concomitant]

REACTIONS (2)
  - Exposure during pregnancy [Recovered/Resolved]
  - Abortion spontaneous [Recovered/Resolved]
